FAERS Safety Report 11781617 (Version 1)
Quarter: 2015Q4

REPORT INFORMATION
  Report Type: Spontaneous
  Country: US (occurrence: US)
  Receive Date: 20151126
  Receipt Date: 20151126
  Transmission Date: 20160305
  Serious: No
  Sender: FDA-Public Use
  Company Number: US-CONCORDIA PHARMACEUTICALS INC.-CO-KP-US-2014-030

PATIENT
  Age: 8 Year
  Sex: Female

DRUGS (4)
  1. KAPVAY [Suspect]
     Active Substance: CLONIDINE HYDROCHLORIDE
     Indication: TIC
     Dosage: 1-2 TABLETS
     Route: 065
     Dates: start: 20141024
  2. KAPVAY [Suspect]
     Active Substance: CLONIDINE HYDROCHLORIDE
     Indication: ATTENTION DEFICIT/HYPERACTIVITY DISORDER
  3. TRILEPTAL [Concomitant]
     Active Substance: OXCARBAZEPINE
     Dosage: 250-300 MG
     Route: 065
  4. ABILIFY [Concomitant]
     Active Substance: ARIPIPRAZOLE
     Route: 065

REACTIONS (2)
  - Peripheral swelling [Recovered/Resolved]
  - Pain in extremity [Recovered/Resolved]

NARRATIVE: CASE EVENT DATE: 20141110
